FAERS Safety Report 15418146 (Version 1)
Quarter: 2018Q3

REPORT INFORMATION
  Report Type: Spontaneous
  Country: US (occurrence: US)
  Receive Date: 20180924
  Receipt Date: 20180924
  Transmission Date: 20181010
  Serious: No
  Sender: FDA-Public Use
  Company Number: US-HORIZON-NVC-DUE-0475-2018

PATIENT
  Age: 51 Year
  Sex: Male

DRUGS (4)
  1. MS CONTIN [Concomitant]
     Active Substance: MORPHINE SULFATE
  2. OXYGEN. [Concomitant]
     Active Substance: OXYGEN
  3. TESTOSTERONE. [Concomitant]
     Active Substance: TESTOSTERONE
  4. DUEXIS [Suspect]
     Active Substance: FAMOTIDINE\IBUPROFEN
     Indication: RHEUMATOID ARTHRITIS

REACTIONS (1)
  - Inability to afford medication [Unknown]
